FAERS Safety Report 14423456 (Version 1)
Quarter: 2018Q1

REPORT INFORMATION
  Report Type: Spontaneous
  Country: US (occurrence: US)
  Receive Date: 20180123
  Receipt Date: 20180123
  Transmission Date: 20180509
  Serious: No
  Sender: FDA-Public Use
  Company Number: US-TEVA-2018-US-848223

PATIENT
  Age: 44 Year
  Sex: Female

DRUGS (1)
  1. CLONAZEPAM. [Suspect]
     Active Substance: CLONAZEPAM
     Indication: ELECTROENCEPHALOGRAM ABNORMAL
     Route: 065
     Dates: start: 19921005, end: 19921005

REACTIONS (3)
  - Agitation [Unknown]
  - Nausea [Unknown]
  - Restlessness [Unknown]

NARRATIVE: CASE EVENT DATE: 19921005
